FAERS Safety Report 12705797 (Version 1)
Quarter: 2016Q3

REPORT INFORMATION
  Report Type: Spontaneous
  Country: US (occurrence: None)
  Receive Date: 20160831
  Receipt Date: 20160831
  Transmission Date: 20161109
  Serious: Yes (Hospitalization, Disabling)
  Sender: FDA-Public Use
  Company Number: None

PATIENT
  Age: 37 Year
  Sex: Female
  Weight: 114.76 kg

DRUGS (9)
  1. MIRTAZAPINE. [Concomitant]
     Active Substance: MIRTAZAPINE
  2. FUROSEMIDE. [Concomitant]
     Active Substance: FUROSEMIDE
  3. ETODOLAC. [Concomitant]
     Active Substance: ETODOLAC
  4. VALUIM [Concomitant]
  5. ABILIFY MAINTENA [Suspect]
     Active Substance: ARIPIPRAZOLE
     Indication: DEPRESSION
     Dosage: 400MG 1 SHOT A MONTH ONCE MONTHLY INJECTION
     Dates: start: 2016, end: 2016
  6. ABILIFY MAINTENA [Suspect]
     Active Substance: ARIPIPRAZOLE
     Indication: PERSONALITY DISORDER
     Dosage: 400MG 1 SHOT A MONTH ONCE MONTHLY INJECTION
     Dates: start: 2016, end: 2016
  7. PROPRANOLOL [Concomitant]
     Active Substance: PROPRANOLOL\PROPRANOLOL HYDROCHLORIDE
  8. ABILIFY MAINTENA [Suspect]
     Active Substance: ARIPIPRAZOLE
     Indication: SCHIZOAFFECTIVE DISORDER
     Dosage: 400MG 1 SHOT A MONTH ONCE MONTHLY INJECTION
     Dates: start: 2016, end: 2016
  9. ABILIFY MAINTENA [Suspect]
     Active Substance: ARIPIPRAZOLE
     Indication: SUBSTANCE ABUSE
     Dosage: 400MG 1 SHOT A MONTH ONCE MONTHLY INJECTION
     Dates: start: 2016, end: 2016

REACTIONS (4)
  - Back pain [None]
  - Activities of daily living impaired [None]
  - Weight increased [None]
  - Swelling [None]

NARRATIVE: CASE EVENT DATE: 20160712
